FAERS Safety Report 5650481-0 (Version None)
Quarter: 2008Q1

REPORT INFORMATION
  Report Type: 
  Country: None (occurrence: None)
  Receive Date: 20080305
  Receipt Date: 20080225
  Transmission Date: 20080703
  Serious: Yes (Other)
  Sender: FDA-Public Use
  Company Number: US-JNJFOC-20080206530

PATIENT
  Sex: Male
  Weight: 78.02 kg

DRUGS (4)
  1. REMICADE [Suspect]
     Indication: CROHN'S DISEASE
     Route: 042
  2. 5-ASA [Concomitant]
  3. 6-MP [Concomitant]
  4. PREDNISONE TAB [Concomitant]

REACTIONS (2)
  - ANTIBODY TEST POSITIVE [None]
  - EPILEPSY [None]
